FAERS Safety Report 21037978 (Version 2)
Quarter: 2022Q3

REPORT INFORMATION
  Report Type: Report from Study
  Country: CH (occurrence: CH)
  Receive Date: 20220704
  Receipt Date: 20220708
  Transmission Date: 20221027
  Serious: Yes (Death, Hospitalization, Other)
  Sender: FDA-Public Use
  Company Number: CH-ABBVIE-22K-151-4455113-00

PATIENT
  Sex: Male

DRUGS (9)
  1. CARBIDOPA\LEVODOPA [Suspect]
     Active Substance: CARBIDOPA\LEVODOPA
     Indication: Parkinson^s disease
     Dosage: 1 CASSETTE
     Route: 050
     Dates: start: 202203, end: 202206
  2. CARBIDOPA\LEVODOPA [Suspect]
     Active Substance: CARBIDOPA\LEVODOPA
  3. PIPERACILLIN AND TAZOBACTAM [Concomitant]
     Active Substance: PIPERACILLIN SODIUM\TAZOBACTAM SODIUM
     Indication: Ileus
     Dates: start: 20220518, end: 20220602
  4. IMIPENEM [Concomitant]
     Active Substance: IMIPENEM
     Indication: Product used for unknown indication
     Dates: start: 20220602, end: 20220603
  5. ANIDULAFUNGIN [Concomitant]
     Active Substance: ANIDULAFUNGIN
     Indication: Fungal infection
     Dates: start: 20220603
  6. CALCIUM CHLORIDE\POTASSIUM CHLORIDE\SODIUM ACETATE\SODIUM CHLORIDE [Concomitant]
     Active Substance: CALCIUM CHLORIDE\POTASSIUM CHLORIDE\SODIUM ACETATE\SODIUM CHLORIDE
     Indication: Malnutrition
     Dosage: NUTRITION
     Dates: start: 20220523, end: 20220603
  7. COVID-19 VACCINE [Concomitant]
     Indication: COVID-19 immunisation
     Route: 030
  8. COVID-19 VACCINE [Concomitant]
     Route: 030
     Dates: start: 202111, end: 202111
  9. THIAMINE HYDROCHLORIDE [Concomitant]
     Active Substance: THIAMINE HYDROCHLORIDE
     Indication: Adjustment disorder

REACTIONS (23)
  - Sepsis [Fatal]
  - Ileus [Fatal]
  - Pneumonia aspiration [Fatal]
  - Gastritis [Not Recovered/Not Resolved]
  - Fistula of small intestine [Unknown]
  - Abdominal operation [Unknown]
  - Gastrointestinal disorder [Unknown]
  - Pleural effusion [Unknown]
  - Malnutrition [Unknown]
  - Coagulopathy [Unknown]
  - Hypertensive cardiomyopathy [Unknown]
  - Diarrhoea [Unknown]
  - Gastrointestinal injury [Unknown]
  - Puncture site injury [Unknown]
  - COVID-19 [Recovered/Resolved]
  - Fungal infection [Unknown]
  - Small intestinal stenosis [Unknown]
  - Lung infiltration [Unknown]
  - Intestinal dilatation [Unknown]
  - Parenteral nutrition [Recovered/Resolved]
  - Ascites [Unknown]
  - Fluid retention [Unknown]
  - Nausea [Unknown]

NARRATIVE: CASE EVENT DATE: 20220101
